FAERS Safety Report 10745620 (Version 3)
Quarter: 2015Q2

REPORT INFORMATION
  Report Type: Spontaneous
  Country: BR (occurrence: BR)
  Receive Date: 20150128
  Receipt Date: 20150406
  Transmission Date: 20150821
  Serious: Yes (Hospitalization, Other)
  Sender: FDA-Public Use
  Company Number: BR-DSJP-DSU-2015-102370

PATIENT

DRUGS (11)
  1. APRESOLINE HYDROCHLORIDE [Concomitant]
     Active Substance: HYDRALAZINE HYDROCHLORIDE
     Indication: HYPERTENSION
     Dosage: UNK, TID
  2. ALPHAGAN P [Concomitant]
     Active Substance: BRIMONIDINE TARTRATE
     Indication: GLAUCOMA
     Dosage: UNK, BID
     Dates: start: 2005
  3. OLMETEC 20 MG [Suspect]
     Active Substance: OLMESARTAN MEDOXOMIL
     Indication: HYPERTENSION
     Dosage: 40 MG, QD
     Dates: start: 2012
  4. AZOPT [Concomitant]
     Active Substance: BRINZOLAMIDE
     Indication: GLAUCOMA
     Dosage: UNK, BID
     Dates: start: 2005
  5. MINIPRESS [Suspect]
     Active Substance: PRAZOSIN HYDROCHLORIDE
     Indication: BLOOD PRESSURE INCREASED
     Dosage: 6 MG (3 CAPULES OF 2 MG), QD
     Route: 048
     Dates: start: 2014
  6. HIGROTON [Concomitant]
     Active Substance: CHLORTHALIDONE
     Indication: HYPERTENSION
     Dosage: 25 MG, UNK
  7. MINIPRESS [Suspect]
     Active Substance: PRAZOSIN HYDROCHLORIDE
     Indication: HYPERTENSION
     Dosage: 2 MG, TID
     Route: 048
     Dates: start: 2013
  8. ATENSINA [Concomitant]
     Active Substance: CLONIDINE
     Indication: HYPERTENSION
     Dosage: 0.2 UNK, TID
  9. INSULIN [Concomitant]
     Active Substance: INSULIN NOS
     Indication: PRODUCT USED FOR UNKNOWN INDICATION
     Dosage: UNK, 6 TMS EVERY 1D
  10. OLMETEC 20 MG [Suspect]
     Active Substance: OLMESARTAN MEDOXOMIL
     Indication: HYPERTENSION
     Dosage: UNK UNK, TID
     Route: 048
  11. CARVEDILOL. [Concomitant]
     Active Substance: CARVEDILOL
     Indication: HYPERTENSION
     Dosage: 25 MG, BID
     Route: 048
     Dates: start: 2012

REACTIONS (5)
  - Bladder disorder [Recovered/Resolved]
  - Diabetic eye disease [Not Recovered/Not Resolved]
  - Venous occlusion [Unknown]
  - Procedural vomiting [Recovered/Resolved]
  - Hypoglycaemia [None]

NARRATIVE: CASE EVENT DATE: 2014
